FAERS Safety Report 10294547 (Version 2)
Quarter: 2014Q3

REPORT INFORMATION
  Report Type: Spontaneous
  Country: US (occurrence: US)
  Receive Date: 20140710
  Receipt Date: 20140710
  Transmission Date: 20150326
  Serious: No
  Sender: FDA-Public Use
  Company Number: US-PURDUE-USA-2014-0111553

PATIENT
  Sex: Female

DRUGS (1)
  1. BUTRANS [Suspect]
     Active Substance: BUPRENORPHINE
     Indication: PAIN
     Dosage: 10 MCG/HR, WEEKLY
     Route: 062
     Dates: start: 20140123

REACTIONS (8)
  - General physical health deterioration [Unknown]
  - Pain [Unknown]
  - Back pain [Unknown]
  - Feeling abnormal [Unknown]
  - Sedation [Unknown]
  - Drug ineffective [Unknown]
  - Somnolence [Unknown]
  - Asthenia [Unknown]
